FAERS Safety Report 25871371 (Version 1)
Quarter: 2025Q4

REPORT INFORMATION
  Report Type: Spontaneous
  Country: EG (occurrence: EG)
  Receive Date: 20251001
  Receipt Date: 20251001
  Transmission Date: 20260118
  Serious: Yes (Hospitalization, Other)
  Sender: PFIZER
  Company Number: EG-PFIZER INC-PV202500116426

PATIENT
  Age: 57 Year
  Sex: Female
  Weight: 42 kg

DRUGS (6)
  1. IRINOTECAN [Suspect]
     Active Substance: IRINOTECAN
     Indication: Colorectal cancer metastatic
     Dosage: 234 MG, INFUSION OVER 90 MINUTES
     Route: 042
     Dates: start: 20250806, end: 20250808
  2. LEUCOVORIN CALCIUM [Suspect]
     Active Substance: LEUCOVORIN CALCIUM
     Indication: Colorectal cancer metastatic
     Dosage: 260 MG (INFUSION OVER 2 HOURS FOR 2 DAYS)
     Route: 042
     Dates: start: 20250806, end: 20250808
  3. FLUOROURACIL [Suspect]
     Active Substance: FLUOROURACIL
     Indication: Colorectal cancer metastatic
     Dosage: 1300 MG INTRAVENOUS SYRINGE + INFUSION OVER 23 HOURS FOR 2 DAYS
     Route: 042
     Dates: start: 20250806, end: 20250808
  4. VECTIBIX [Suspect]
     Active Substance: PANITUMUMAB
     Indication: Colorectal cancer metastatic
     Dosage: 252 MG  INFUSION OVER 60 MINUTES
     Route: 042
     Dates: start: 20250806, end: 20250808
  5. DEXAMETHASONE [Concomitant]
     Active Substance: DEXAMETHASONE
     Indication: Premedication
     Dosage: UNK
     Route: 042
  6. EM EX [Concomitant]
     Indication: Premedication
     Dosage: UNK
     Route: 042

REACTIONS (11)
  - Febrile neutropenia [Not Recovered/Not Resolved]
  - Leukopenia [Not Recovered/Not Resolved]
  - Thrombocytopenia [Not Recovered/Not Resolved]
  - Hypoalbuminaemia [Not Recovered/Not Resolved]
  - Blood creatinine increased [Not Recovered/Not Resolved]
  - Cough [Not Recovered/Not Resolved]
  - Fatigue [Not Recovered/Not Resolved]
  - Vomiting [Not Recovered/Not Resolved]
  - General physical health deterioration [Not Recovered/Not Resolved]
  - Blood pressure decreased [Not Recovered/Not Resolved]
  - Chest pain [Not Recovered/Not Resolved]

NARRATIVE: CASE EVENT DATE: 20250813
